FAERS Safety Report 24650895 (Version 1)
Quarter: 2024Q4

REPORT INFORMATION
  Report Type: Spontaneous
  Country: DE (occurrence: DE)
  Receive Date: 20241122
  Receipt Date: 20241122
  Transmission Date: 20250114
  Serious: Yes (Other)
  Sender: ALKEM
  Company Number: DE-ALKEM LABORATORIES LIMITED-DE-ALKEM-2024-00575

PATIENT
  Age: 35 Year
  Sex: Male

DRUGS (33)
  1. OLANZAPINE [Suspect]
     Active Substance: OLANZAPINE
     Indication: Schizophrenia
     Dosage: 30 MG/D
     Route: 065
     Dates: start: 20211105
  2. OLANZAPINE [Suspect]
     Active Substance: OLANZAPINE
     Dosage: 30 MG/D
     Route: 065
     Dates: start: 20211117
  3. OLANZAPINE [Suspect]
     Active Substance: OLANZAPINE
     Dosage: 15 MG/D
     Route: 065
     Dates: start: 20211126
  4. OLANZAPINE [Suspect]
     Active Substance: OLANZAPINE
     Dosage: 20 MG/D
     Route: 065
     Dates: start: 20211127
  5. OLANZAPINE [Suspect]
     Active Substance: OLANZAPINE
     Dosage: 20 MG/D
     Route: 065
     Dates: start: 20211129
  6. CLOZAPINE [Suspect]
     Active Substance: CLOZAPINE
     Indication: Schizophrenia
     Dosage: UNK
     Route: 065
     Dates: start: 20211027
  7. CLOZAPINE [Suspect]
     Active Substance: CLOZAPINE
     Dosage: UNK
     Route: 065
     Dates: start: 20211105
  8. CLOZAPINE [Suspect]
     Active Substance: CLOZAPINE
     Dosage: UNK
     Route: 065
     Dates: start: 20211108
  9. CLOZAPINE [Suspect]
     Active Substance: CLOZAPINE
     Dosage: 12.5 MG/D
     Route: 065
     Dates: start: 20211111
  10. CLOZAPINE [Suspect]
     Active Substance: CLOZAPINE
     Dosage: 25 MG/D
     Route: 065
     Dates: start: 20211112
  11. CLOZAPINE [Suspect]
     Active Substance: CLOZAPINE
     Dosage: 50 MG/D
     Route: 065
     Dates: start: 20211114
  12. CLOZAPINE [Suspect]
     Active Substance: CLOZAPINE
     Dosage: 50 MG/D
     Route: 065
     Dates: start: 20211115
  13. CLOZAPINE [Suspect]
     Active Substance: CLOZAPINE
     Dosage: 75 MG/D
     Route: 065
     Dates: start: 20211117
  14. CLOZAPINE [Suspect]
     Active Substance: CLOZAPINE
     Dosage: 100 MG/D
     Route: 065
     Dates: start: 20211118
  15. CLOZAPINE [Suspect]
     Active Substance: CLOZAPINE
     Dosage: 125 MG/D
     Route: 065
     Dates: start: 20211120
  16. CLOZAPINE [Suspect]
     Active Substance: CLOZAPINE
     Dosage: 150 MG/D
     Route: 065
     Dates: start: 20211123
  17. CLOZAPINE [Suspect]
     Active Substance: CLOZAPINE
     Dosage: 175 MG/D
     Route: 065
     Dates: start: 20211125
  18. CLOZAPINE [Suspect]
     Active Substance: CLOZAPINE
     Dosage: 87.5 MG/D
     Route: 065
     Dates: start: 20211126
  19. CLOZAPINE [Suspect]
     Active Substance: CLOZAPINE
     Dosage: 175 MG/D
     Route: 065
     Dates: start: 20211127
  20. CLOZAPINE [Suspect]
     Active Substance: CLOZAPINE
     Dosage: 200 MG/D
     Route: 065
     Dates: start: 20211129
  21. CLOZAPINE [Suspect]
     Active Substance: CLOZAPINE
     Dosage: UNK
     Route: 065
     Dates: start: 20211203
  22. CLOZAPINE [Suspect]
     Active Substance: CLOZAPINE
     Dosage: UNK
     Route: 065
     Dates: start: 20211204
  23. CLOZAPINE [Suspect]
     Active Substance: CLOZAPINE
     Dosage: UNK
     Route: 065
     Dates: start: 20211208
  24. CLOZAPINE [Suspect]
     Active Substance: CLOZAPINE
     Dosage: UNK
     Route: 065
     Dates: start: 20211213
  25. CLOZAPINE [Suspect]
     Active Substance: CLOZAPINE
     Dosage: UNK
     Route: 065
     Dates: start: 20211215
  26. CLOZAPINE [Suspect]
     Active Substance: CLOZAPINE
     Dosage: UNK
     Route: 065
     Dates: start: 20211217
  27. CLOZAPINE [Suspect]
     Active Substance: CLOZAPINE
     Dosage: UNK
     Route: 065
     Dates: start: 20211221
  28. COMIRNATY (TOZINAMERAN) [Suspect]
     Active Substance: TOZINAMERAN
     Indication: Product used for unknown indication
     Dosage: UNK (FIRST DOSE)
     Route: 065
     Dates: start: 20211105
  29. COMIRNATY (TOZINAMERAN) [Suspect]
     Active Substance: TOZINAMERAN
     Dosage: UNK (SECOND DOSE)
     Route: 065
     Dates: start: 20211126
  30. CARIPRAZINE [Concomitant]
     Active Substance: CARIPRAZINE
     Indication: Schizophrenia
     Dosage: 1.5 MG/D
     Route: 065
     Dates: start: 20211204
  31. CARIPRAZINE [Concomitant]
     Active Substance: CARIPRAZINE
     Dosage: 3 MG/D
     Route: 065
     Dates: start: 20211215
  32. FLUOXETINE [Concomitant]
     Active Substance: FLUOXETINE HYDROCHLORIDE
     Indication: Schizophrenia
     Dosage: 20 MG/D
     Route: 065
  33. HALOPERIDOL [Concomitant]
     Active Substance: HALOPERIDOL
     Indication: Schizophrenia
     Dosage: 20 MG/D
     Route: 065

REACTIONS (2)
  - Myocarditis [Recovered/Resolved]
  - Tachycardia [Recovered/Resolved]
